FAERS Safety Report 10655439 (Version 1)
Quarter: 2014Q4

REPORT INFORMATION
  Report Type: Spontaneous
  Country: US (occurrence: None)
  Receive Date: 20141215
  Receipt Date: 20141215
  Transmission Date: 20150529
  Serious: Yes (Disabling)
  Sender: FDA-Public Use
  Company Number: None

PATIENT
  Age: 58 Year
  Sex: Female
  Weight: 83.92 kg

DRUGS (1)
  1. LEVAQUIN [Suspect]
     Active Substance: LEVOFLOXACIN
     Indication: PNEUMONIA
     Dosage: 1 PILL
     Route: 048
     Dates: start: 20141114, end: 20141212

REACTIONS (6)
  - Muscle injury [None]
  - Job dissatisfaction [None]
  - Activities of daily living impaired [None]
  - Headache [None]
  - Gastric disorder [None]
  - Confusional state [None]

NARRATIVE: CASE EVENT DATE: 20141212
